FAERS Safety Report 6120275-0 (Version None)
Quarter: 2009Q1

REPORT INFORMATION
  Report Type: 
  Country: None (occurrence: None)
  Receive Date: 20090312
  Receipt Date: 20090303
  Transmission Date: 20090719
  Serious: Yes (Death, Hospitalization)
  Sender: FDA-Public Use
  Company Number: 2009AL001235

PATIENT
  Sex: Male

DRUGS (1)
  1. DIGOXIN [Suspect]
     Dosage: PO
     Route: 048

REACTIONS (4)
  - ABDOMINAL PAIN [None]
  - ARRHYTHMIA [None]
  - DYSPNOEA [None]
  - HYPOTENSION [None]
